FAERS Safety Report 9255619 (Version 1)
Quarter: 2013Q2

REPORT INFORMATION
  Report Type: Spontaneous
  Country: CN (occurrence: CN)
  Receive Date: 20130425
  Receipt Date: 20130425
  Transmission Date: 20140414
  Serious: Yes (Hospitalization)
  Sender: FDA-Public Use
  Company Number: CN-GLAXOSMITHKLINE-B0878674A

PATIENT
  Age: 50 Year
  Sex: Male

DRUGS (3)
  1. HEPTODIN [Suspect]
     Indication: HEPATITIS B
     Dosage: 100MG PER DAY
     Route: 048
     Dates: start: 2008, end: 20130320
  2. HEPTODIN [Suspect]
     Indication: HEPATITIS B
     Dosage: 200MG PER DAY
     Route: 048
     Dates: start: 20130321, end: 20130321
  3. HEPSERA [Suspect]
     Indication: HEPATITIS B
     Dosage: 10MG PER DAY
     Route: 048
     Dates: start: 2008

REACTIONS (3)
  - Accidental overdose [Unknown]
  - Jaundice [Recovered/Resolved]
  - Transaminases increased [Recovered/Resolved]
